FAERS Safety Report 8344652-2 (Version None)
Quarter: 2012Q2

REPORT INFORMATION
  Report Type: 
  Country: None (occurrence: None)
  Receive Date: 20120508
  Receipt Date: 20120427
  Transmission Date: 20120825
  Serious: Yes (Other)
  Sender: FDA-Public Use
  Company Number: CA-JNJFOC-20120414103

PATIENT
  Sex: Female
  Weight: 80 kg

DRUGS (2)
  1. IRON INFUSION [Concomitant]
     Route: 065
  2. REMICADE [Suspect]
     Indication: CROHN'S DISEASE
     Route: 042
     Dates: start: 20101206

REACTIONS (1)
  - DIVERTICULITIS [None]
